FAERS Safety Report 17485391 (Version 2)
Quarter: 2020Q4

REPORT INFORMATION
  Report Type: Spontaneous
  Country: US (occurrence: US)
  Receive Date: 20200302
  Receipt Date: 20201005
  Transmission Date: 20210113
  Serious: No
  Sender: FDA-Public Use
  Company Number: US-VERTEX PHARMACEUTICALS-2020-003691

PATIENT
  Age: 2 Year
  Sex: Female
  Weight: 10.88 kg

DRUGS (2)
  1. ALBUTEROL [SALBUTAMOL] [Concomitant]
     Active Substance: ALBUTEROL
     Dosage: UNK
  2. KALYDECO [Suspect]
     Active Substance: IVACAFTOR
     Indication: CYSTIC FIBROSIS
     Dosage: 50 MG, BID (REGULAR)
     Route: 048
     Dates: start: 20181026

REACTIONS (6)
  - Rhinovirus infection [Unknown]
  - Sinus disorder [Unknown]
  - Infection [Unknown]
  - Cough [Recovering/Resolving]
  - Pain [Recovered/Resolved]
  - Pyrexia [Recovered/Resolved]

NARRATIVE: CASE EVENT DATE: 202003
